FAERS Safety Report 7790647-7 (Version None)
Quarter: 2011Q3

REPORT INFORMATION
  Report Type: 
  Country: None (occurrence: None)
  Receive Date: 20110930
  Receipt Date: 20110609
  Transmission Date: 20111222
  Serious: No
  Sender: FDA-Public Use
  Company Number: US-BAYER-2011-050448

PATIENT
  Age: 62 Year
  Sex: Male

DRUGS (4)
  1. LEVITRA [Suspect]
     Indication: ERECTILE DYSFUNCTION
     Dosage: 20 MG, PRN
     Route: 048
     Dates: start: 20100601, end: 20110519
  2. IBUPROFEN (ADVIL) [Concomitant]
  3. RANITIDINE [Concomitant]
  4. NAPROXEN (ALEVE) [Concomitant]

REACTIONS (1)
  - HEADACHE [None]
